FAERS Safety Report 11831847 (Version 1)
Quarter: 2015Q4

REPORT INFORMATION
  Report Type: Spontaneous
  Country: US (occurrence: US)
  Receive Date: 20151214
  Receipt Date: 20151214
  Transmission Date: 20160305
  Serious: Yes (Other)
  Sender: FDA-Public Use
  Company Number: US-DRREDDYS-USA/USA/14/0045200

PATIENT
  Age: 8 Year
  Sex: Female

DRUGS (2)
  1. RISPERIDONE. [Suspect]
     Active Substance: RISPERIDONE
     Indication: PSYCHOTIC DISORDER
     Route: 065
  2. RISPERIDONE. [Suspect]
     Active Substance: RISPERIDONE
     Route: 065

REACTIONS (8)
  - Drug ineffective [Unknown]
  - Product quality issue [Unknown]
  - Precocious puberty [Unknown]
  - Hyperprolactinaemia [Unknown]
  - Irritability [Unknown]
  - Disturbance in attention [Unknown]
  - Increased appetite [Unknown]
  - Poor quality sleep [Unknown]
